FAERS Safety Report 6304503-4 (Version None)
Quarter: 2009Q3

REPORT INFORMATION
  Report Type: 
  Country: None (occurrence: None)
  Receive Date: 20090811
  Receipt Date: 20090729
  Transmission Date: 20100115
  Serious: Yes (Other)
  Sender: FDA-Public Use
  Company Number: US-ROCHE-643989

PATIENT
  Sex: Female
  Weight: 68 kg

DRUGS (8)
  1. CELLCEPT [Suspect]
     Indication: MYASTHENIA GRAVIS
     Route: 048
     Dates: start: 20090115
  2. CELLCEPT [Suspect]
     Route: 048
     Dates: start: 20090328
  3. PREDNISONE [Suspect]
     Indication: MYASTHENIA GRAVIS
     Route: 048
     Dates: start: 20090201, end: 20090610
  4. PREDNISONE [Suspect]
     Route: 048
     Dates: start: 20090610
  5. PREDNISONE [Suspect]
     Route: 048
  6. MESTINON [Concomitant]
     Indication: MYASTHENIA GRAVIS
     Dosage: DISCONTINUED ON ENDING MAY 2009
     Route: 048
     Dates: start: 20090101, end: 20090525
  7. PRILOSEC [Concomitant]
     Route: 048
  8. ZANTAC [Concomitant]
     Route: 048

REACTIONS (1)
  - POROKERATOSIS [None]
